FAERS Safety Report 12961926 (Version 1)
Quarter: 2016Q4

REPORT INFORMATION
  Report Type: Spontaneous
  Country: US (occurrence: US)
  Receive Date: 20161121
  Receipt Date: 20161121
  Transmission Date: 20170207
  Serious: Yes (Other)
  Sender: FDA-Public Use
  Company Number: US-MYLANLABS-2016M1049655

PATIENT

DRUGS (1)
  1. ETHINYLESTRADIOL/NORGESTIMATE [Suspect]
     Active Substance: ETHINYL ESTRADIOL\NORGESTIMATE
     Indication: ORAL CONTRACEPTION
     Route: 048

REACTIONS (2)
  - Mastoid disorder [Recovering/Resolving]
  - Intracranial venous sinus thrombosis [Recovering/Resolving]
